FAERS Safety Report 7764084-5 (Version None)
Quarter: 2011Q3

REPORT INFORMATION
  Report Type: 
  Country: None (occurrence: None)
  Receive Date: 20110921
  Receipt Date: 20110908
  Transmission Date: 20111222
  Serious: Yes (Other)
  Sender: FDA-Public Use
  Company Number: US-BAYER-2011-024124

PATIENT
  Age: 31 Year
  Sex: Female

DRUGS (3)
  1. LIPITOR [Concomitant]
     Dosage: 20 MG, UNK
  2. YASMIN [Suspect]
     Indication: CONTRACEPTION
     Dosage: UNK
     Route: 048
     Dates: start: 20050808, end: 20050823
  3. MOTRIN [Concomitant]

REACTIONS (9)
  - INJURY [None]
  - PAIN [None]
  - EMOTIONAL DISTRESS [None]
  - PAIN IN EXTREMITY [None]
  - MIGRAINE [None]
  - DEEP VEIN THROMBOSIS [None]
  - SLEEP APNOEA SYNDROME [None]
  - WEIGHT INCREASED [None]
  - HEADACHE [None]
